FAERS Safety Report 16358096 (Version 9)
Quarter: 2020Q2

REPORT INFORMATION
  Report Type: Report from Study
  Country: BR (occurrence: BR)
  Receive Date: 20190527
  Receipt Date: 20200526
  Transmission Date: 20200713
  Serious: Yes (Hospitalization, Other)
  Sender: FDA-Public Use
  Company Number: BR-UCBSA-2019021358

PATIENT
  Age: 59 Year
  Sex: Female
  Weight: 62 kg

DRUGS (15)
  1. PRELONE [Concomitant]
     Active Substance: PREDNISOLONE
     Indication: RHEUMATOID ARTHRITIS
     Dosage: 5 MILLIGRAM, ONCE DAILY (QD)
     Route: 048
  2. ZINFORO [Concomitant]
     Active Substance: CEFTAROLINE FOSAMIL
     Indication: PNEUMONIA
     Dosage: 600 MILLIGRAM, UNK
     Route: 042
  3. ALENIA [ESOMEPRAZOLE MAGNESIUM] [Concomitant]
     Active Substance: ESOMEPRAZOLE MAGNESIUM
  4. OXOTRON [Concomitant]
     Indication: ARTHRALGIA
     Dosage: 3 DOSAGE FORM, ONCE DAILY (QD)
     Dates: start: 20190810, end: 20190820
  5. ATENOLOL. [Concomitant]
     Active Substance: ATENOLOL
     Dosage: UNK
  6. AMOXICILLIN. [Concomitant]
     Active Substance: AMOXICILLIN
     Dosage: UNK
  7. ALLEGRA [Concomitant]
     Active Substance: FEXOFENADINE HYDROCHLORIDE
     Indication: PRODUCT USED FOR UNKNOWN INDICATION
     Dosage: UNK
     Dates: start: 20190722, end: 2019
  8. DIPIRONA [Concomitant]
     Active Substance: METAMIZOLE
     Indication: MUSCULOSKELETAL CHEST PAIN
     Dosage: UNK
     Route: 042
     Dates: start: 20190515, end: 20190515
  9. MIOSAN [Concomitant]
     Active Substance: CYCLOBENZAPRINE
     Indication: PAIN
     Dosage: UNK
     Route: 048
     Dates: start: 201905
  10. CERTOLIZUMAB PEGOL [Suspect]
     Active Substance: CERTOLIZUMAB PEGOL
     Indication: RHEUMATOID ARTHRITIS
     Dosage: 400 MILLIGRAM, EV 4 WEEKS
     Route: 058
     Dates: start: 20180712, end: 20190301
  11. PRELONE [Concomitant]
     Active Substance: PREDNISOLONE
     Indication: ARTHRALGIA
     Dosage: 1 DOSAGE FORM, ONCE DAILY (QD)
     Route: 048
     Dates: start: 2018
  12. AZICIN [Concomitant]
     Indication: PNEUMONIA
     Dosage: EVERY 10 DAYS
     Route: 042
     Dates: start: 20180712, end: 20190303
  13. LOSARTAN. [Concomitant]
     Active Substance: LOSARTAN
     Dosage: UNK
  14. DECADRON [Concomitant]
     Active Substance: DEXAMETHASONE
     Indication: MUSCULOSKELETAL CHEST PAIN
     Dosage: UNK
     Route: 030
     Dates: start: 20190515, end: 20190515
  15. CERTOLIZUMAB PEGOL [Suspect]
     Active Substance: CERTOLIZUMAB PEGOL
     Dosage: 400 MILLIGRAM, EV 4 WEEKS
     Route: 058
     Dates: start: 2019

REACTIONS (13)
  - Pulmonary mass [Not Recovered/Not Resolved]
  - Neck pain [Unknown]
  - Therapy cessation [Unknown]
  - Pneumonia [Recovered/Resolved]
  - Product availability issue [Unknown]
  - Musculoskeletal chest pain [Recovered/Resolved]
  - Nausea [Recovering/Resolving]
  - Application site haemorrhage [Recovered/Resolved]
  - Headache [Recovered/Resolved]
  - Nasopharyngitis [Recovered/Resolved]
  - Hypersensitivity [Not Recovered/Not Resolved]
  - Arrhythmia [Not Recovered/Not Resolved]
  - Pyrexia [Recovered/Resolved]

NARRATIVE: CASE EVENT DATE: 2019
